FAERS Safety Report 21570795 (Version 1)
Quarter: 2022Q4

REPORT INFORMATION
  Report Type: Spontaneous
  Country: FR (occurrence: FR)
  Receive Date: 20221109
  Receipt Date: 20221109
  Transmission Date: 20230113
  Serious: Yes (Life-Threatening, Other)
  Sender: FDA-Public Use
  Company Number: FR-AFSSAPS-AN20222333

PATIENT
  Age: 60 Year
  Sex: Female
  Weight: 47 kg

DRUGS (2)
  1. PREDNISONE [Suspect]
     Active Substance: PREDNISONE
     Indication: Anti-neutrophil cytoplasmic antibody positive vasculitis
     Dosage: 20 MILLIGRAM, ONCE A DAY
     Route: 048
     Dates: start: 202204, end: 20220821
  2. RITUXIMAB [Suspect]
     Active Substance: RITUXIMAB
     Indication: Extranodal marginal zone B-cell lymphoma (MALT type)
     Dosage: UNK
     Route: 042
     Dates: end: 202004

REACTIONS (1)
  - Pneumonia pseudomonal [Recovering/Resolving]

NARRATIVE: CASE EVENT DATE: 20220801
